FAERS Safety Report 25289607 (Version 3)
Quarter: 2025Q3

REPORT INFORMATION
  Report Type: Report from Study
  Country: US (occurrence: US)
  Receive Date: 20250509
  Receipt Date: 20250820
  Transmission Date: 20251020
  Serious: No
  Sender: SUNOVION
  Company Number: US-SUMITOMO PHARMA SWITZERLAND GMBH-2025SPA005487

PATIENT
  Age: 61 Year
  Sex: Male

DRUGS (2)
  1. ORGOVYX [Suspect]
     Active Substance: RELUGOLIX
     Indication: Prostate cancer
     Route: 048
  2. ORGOVYX [Suspect]
     Active Substance: RELUGOLIX
     Dosage: 120 MG, QD
     Route: 048
     Dates: start: 20250327

REACTIONS (12)
  - Dental care [Unknown]
  - Emotional disorder [Unknown]
  - Stressed eating [Unknown]
  - Food craving [Unknown]
  - Pain [Unknown]
  - Hypersensitivity [Unknown]
  - Erectile dysfunction [Unknown]
  - Hot flush [Unknown]
  - Weight increased [Unknown]
  - Gynaecomastia [Unknown]
  - Insomnia [Unknown]
  - Arthralgia [Unknown]
